FAERS Safety Report 23772443 (Version 2)
Quarter: 2024Q2

REPORT INFORMATION
  Report Type: Spontaneous
  Country: DE (occurrence: DE)
  Receive Date: 20240423
  Receipt Date: 20240529
  Transmission Date: 20240716
  Serious: Yes (Other)
  Sender: FDA-Public Use
  Company Number: DE-002147023-NVSC2024DE083831

PATIENT
  Age: 63 Year
  Sex: Female
  Weight: 80 kg

DRUGS (3)
  1. BEOVU [Suspect]
     Active Substance: BROLUCIZUMAB-DBLL
     Indication: Diabetic retinal oedema
     Dosage: UNK
     Route: 031
     Dates: start: 20221006, end: 20221006
  2. BEOVU [Suspect]
     Active Substance: BROLUCIZUMAB-DBLL
     Dosage: UNK
     Route: 031
     Dates: start: 20221117, end: 20221117
  3. BEOVU [Suspect]
     Active Substance: BROLUCIZUMAB-DBLL
     Dosage: UNK
     Route: 031
     Dates: start: 20230110, end: 20230110

REACTIONS (2)
  - Autoimmune disorder [Recovered/Resolved with Sequelae]
  - Retinal occlusive vasculitis [Recovered/Resolved with Sequelae]

NARRATIVE: CASE EVENT DATE: 20230116
